FAERS Safety Report 19314537 (Version 1)
Quarter: 2021Q2

REPORT INFORMATION
  Report Type: Report from Study
  Country: CO (occurrence: CO)
  Receive Date: 20210527
  Receipt Date: 20210527
  Transmission Date: 20210717
  Serious: Yes (Other)
  Sender: FDA-Public Use
  Company Number: CO-AMGEN-COLSL2021043017

PATIENT
  Age: 69 Year
  Sex: Male

DRUGS (2)
  1. ARTIFICIAL TEARS [HYPROMELLOSE] [Concomitant]
     Dosage: 1 DROP, BID (IN EACH EYE)
     Dates: start: 20210506
  2. VECTIBIX [Suspect]
     Active Substance: PANITUMUMAB
     Indication: COLORECTAL CANCER METASTATIC
     Dosage: 510 MILLIGRAM, Q2WK (BI?WEEKLY)
     Route: 042
     Dates: start: 20200908

REACTIONS (4)
  - Nail injury [Recovering/Resolving]
  - Insomnia [Recovering/Resolving]
  - Diarrhoea [Recovering/Resolving]
  - Respiratory tract infection [Recovering/Resolving]

NARRATIVE: CASE EVENT DATE: 20210312
